FAERS Safety Report 8386104-X (Version None)
Quarter: 2012Q2

REPORT INFORMATION
  Report Type: 
  Country: None (occurrence: None)
  Receive Date: 20120525
  Receipt Date: 20120426
  Transmission Date: 20120825
  Serious: No
  Sender: FDA-Public Use
  Company Number: US-BAYER-2012-041598

PATIENT
  Sex: Male

DRUGS (5)
  1. STATIN [Concomitant]
  2. LISINOPRIL [Concomitant]
  3. CELLCEPT [Concomitant]
  4. NIASPAN [Concomitant]
  5. LEVITRA [Suspect]
     Indication: RADICAL PROSTATECTOMY
     Dosage: 20 MG, BIW
     Dates: start: 20070101

REACTIONS (1)
  - THERAPEUTIC RESPONSE DECREASED [None]
